FAERS Safety Report 9166419 (Version 1)
Quarter: 2013Q1

REPORT INFORMATION
  Report Type: Spontaneous
  Country: US (occurrence: US)
  Receive Date: 20130315
  Receipt Date: 20130315
  Transmission Date: 20140127
  Serious: Yes (Other)
  Sender: FDA-Public Use
  Company Number: US-BAYER-2013-031738

PATIENT
  Age: 68 Year
  Sex: Male

DRUGS (1)
  1. NEXAVAR [Suspect]
     Indication: HEPATIC CANCER
     Dosage: 8X200 MG/DAY
     Dates: start: 2012

REACTIONS (3)
  - Contusion [None]
  - Petechiae [None]
  - Blood pressure increased [None]
